FAERS Safety Report 5015275-8 (Version None)
Quarter: 2006Q2

REPORT INFORMATION
  Report Type: 
  Country: None (occurrence: None)
  Receive Date: 20060601
  Receipt Date: 20060430
  Transmission Date: 20061013
  Serious: Yes (Disabling, Other)
  Sender: FDA-Public Use
  Company Number: PHEH2006US05712

PATIENT
  Age: 42 Year
  Sex: Male

DRUGS (1)
  1. LAMISIL [Suspect]
     Route: 048

REACTIONS (5)
  - CORNEAL LESION [None]
  - EYE PAIN [None]
  - INFECTION [None]
  - NO THERAPEUTIC RESPONSE [None]
  - RETINAL DISORDER [None]
